FAERS Safety Report 12283600 (Version 3)
Quarter: 2017Q1

REPORT INFORMATION
  Report Type: Report from Study
  Country: US (occurrence: US)
  Receive Date: 20160419
  Receipt Date: 20170213
  Transmission Date: 20170428
  Serious: Yes (Other)
  Sender: FDA-Public Use
  Company Number: US-GILEAD-2016-0208649

PATIENT
  Age: 67 Year
  Sex: Female

DRUGS (1)
  1. LEDIPASVIR/SOFOSBUVIR [Suspect]
     Active Substance: LEDIPASVIR\SOFOSBUVIR
     Indication: CHRONIC HEPATITIS C
     Dosage: 1 DF, QD
     Route: 048
     Dates: start: 20160316, end: 20160616

REACTIONS (21)
  - Blister [Not Recovered/Not Resolved]
  - Discomfort [Not Recovered/Not Resolved]
  - Insomnia [Not Recovered/Not Resolved]
  - Feeling abnormal [Not Recovered/Not Resolved]
  - Pain [Unknown]
  - Skin lesion [Unknown]
  - Urticaria [Unknown]
  - Skin exfoliation [Not Recovered/Not Resolved]
  - Rash generalised [Unknown]
  - Pain of skin [Unknown]
  - Dermatitis [Not Recovered/Not Resolved]
  - Irritability [Not Recovered/Not Resolved]
  - General physical condition abnormal [Unknown]
  - Skin necrosis [Not Recovered/Not Resolved]
  - Activities of daily living impaired [Unknown]
  - Skin odour abnormal [Not Recovered/Not Resolved]
  - Skin burning sensation [Unknown]
  - Malaise [Unknown]
  - Fatigue [Not Recovered/Not Resolved]
  - Asthenia [Unknown]
  - General physical health deterioration [Unknown]

NARRATIVE: CASE EVENT DATE: 2016
